APPROVED DRUG PRODUCT: VOQUEZNA
Active Ingredient: VONOPRAZAN FUMARATE
Strength: EQ 10MG BASE
Dosage Form/Route: TABLET;ORAL
Application: N215151 | Product #001
Applicant: PHATHOM PHARMACEUTICALS INC
Approved: Nov 1, 2023 | RLD: Yes | RS: No | Type: RX

PATENTS:
Patent 7977488 | Expires: Apr 10, 2030
Patent 9186411 | Expires: Aug 11, 2030

EXCLUSIVITY:
Code: I-948 | Date: Jul 17, 2027
Code: NCE | Date: May 3, 2027
Code: NP | Date: Nov 1, 2026
Code: GAIN | Date: May 3, 2032